FAERS Safety Report 24253047 (Version 1)
Quarter: 2024Q3

REPORT INFORMATION
  Report Type: Spontaneous
  Country: TR (occurrence: TR)
  Receive Date: 20240827
  Receipt Date: 20240827
  Transmission Date: 20241017
  Serious: Yes (Death, Life-Threatening)
  Sender: AMGEN
  Company Number: TR-AMGEN-TURSP2024167392

PATIENT

DRUGS (1)
  1. BEVACIZUMAB [Suspect]
     Active Substance: BEVACIZUMAB
     Indication: Retinopathy of prematurity
     Dosage: 0.625 MILLIGRAM, IN 0.025 ML, 1.5 MM BEHIND THE LIMBUS FROM THE INFERIOR TEMPORAL QUADRANT

REACTIONS (2)
  - Respiratory failure [Fatal]
  - Off label use [Unknown]
